FAERS Safety Report 6182615-6 (Version None)
Quarter: 2009Q2

REPORT INFORMATION
  Report Type: 
  Country: None (occurrence: None)
  Receive Date: 20090505
  Receipt Date: 20090420
  Transmission Date: 20091009
  Serious: Yes (Other)
  Sender: FDA-Public Use
  Company Number: 2009S1006815

PATIENT
  Age: 65 Year
  Sex: Male

DRUGS (10)
  1. CHLORPROMAZINE [Suspect]
     Indication: DEPRESSION
     Dosage: 75 MG; DAILY
  2. CLOMIPRAMINE HCL [Suspect]
     Indication: DEPRESSION
     Dosage: 150 MG/KG; DAILY
  3. FLUVOXAMINE MALEATE [Suspect]
     Indication: DEPRESSION
     Dosage: 150 MG; DAILY; ORAL
     Route: 048
  4. MIANSERIN (MIANSERIN) [Suspect]
     Indication: DEPRESSION
     Dosage: 20 MG; DAILY
  5. ANTIDEPRESSANTS [Concomitant]
  6. SULPIRIDE [Concomitant]
  7. BROMAZEPAM [Concomitant]
  8. ESTAZOLAM [Concomitant]
  9. BROTIZOLAM [Concomitant]
  10. CANDESARTAN CILEXETIL [Concomitant]

REACTIONS (9)
  - BLADDER DISTENSION [None]
  - DEPRESSION [None]
  - EXTRINSIC VASCULAR COMPRESSION [None]
  - LIMB DISCOMFORT [None]
  - OEDEMA PERIPHERAL [None]
  - PULMONARY EMBOLISM [None]
  - SKIN DISCOLOURATION [None]
  - STUPOR [None]
  - TREATMENT FAILURE [None]
